FAERS Safety Report 6644875-4 (Version None)
Quarter: 2010Q1

REPORT INFORMATION
  Report Type: 
  Country: None (occurrence: None)
  Receive Date: 20100317
  Receipt Date: 20100309
  Transmission Date: 20100710
  Serious: Yes (Hospitalization)
  Sender: FDA-Public Use
  Company Number: A0849176A

PATIENT
  Sex: Female

DRUGS (1)
  1. BENZOYL PEROXIDE WASH (BENZOYL PEROXIDE) [Suspect]
     Indication: DRUG USE FOR UNKNOWN INDICATION

REACTIONS (7)
  - BURNING SENSATION [None]
  - DYSPNOEA [None]
  - ERYTHEMA [None]
  - HYPOPHAGIA [None]
  - PRURITUS [None]
  - SWELLING [None]
  - URTICARIA [None]
